FAERS Safety Report 6278315-4 (Version None)
Quarter: 2009Q3

REPORT INFORMATION
  Report Type: 
  Country: None (occurrence: None)
  Receive Date: 20090722
  Receipt Date: 20080109
  Transmission Date: 20100115
  Serious: Yes (Other)
  Sender: FDA-Public Use
  Company Number: US-PFIZER INC-2008003970

PATIENT
  Sex: Male
  Weight: 86.2 kg

DRUGS (6)
  1. DILANTIN [Interacting]
     Indication: CONVULSION
     Dates: start: 19800101
  2. DILANTIN [Interacting]
     Dates: start: 20000101
  3. PHENYTOIN AND PHENYTOIN SODIUM [Suspect]
     Dosage: 100 MG
     Dates: start: 20030101
  4. LEVAQUIN [Interacting]
     Indication: SINUSITIS
     Dates: start: 20060101
  5. LORATADINE [Concomitant]
  6. PRILOSEC [Concomitant]

REACTIONS (6)
  - CONVULSION [None]
  - DRUG DOSE OMISSION [None]
  - DRUG INTERACTION [None]
  - NEUROPATHY PERIPHERAL [None]
  - PRODUCT SUBSTITUTION ISSUE [None]
  - SINUSITIS [None]
